FAERS Safety Report 9011012 (Version 1)
Quarter: 2013Q1

REPORT INFORMATION
  Report Type: Spontaneous
  Country: US (occurrence: US)
  Receive Date: 20130111
  Receipt Date: 20130111
  Transmission Date: 20140127
  Serious: Yes (Hospitalization)
  Sender: FDA-Public Use
  Company Number: US-009507513-1301USA001462

PATIENT
  Sex: Female

DRUGS (13)
  1. MONTELUKAST SODIUM [Suspect]
  2. TRAMADOL HYDROCHLORIDE [Suspect]
  3. VENLAFAXINE HYDROCHLORIDE [Suspect]
  4. SALMETEROL [Suspect]
  5. BECLOMETHASONE DIPROPIONATE [Suspect]
  6. CLONAZEPAM [Suspect]
  7. NEURONTIN [Suspect]
     Dosage: 600 MG, QID
  8. MEDROGESTONE [Concomitant]
  9. SERTRALINE HYDROCHLORIDE [Concomitant]
  10. ACETAMINOPHEN (+) CAFFEINE (+) OPIUM [Concomitant]
  11. HYDROXYZINE [Concomitant]
  12. LORATADINE [Concomitant]
  13. CETIRIZINE HYDROCHLORIDE [Concomitant]

REACTIONS (2)
  - Urticaria [Unknown]
  - Drug interaction [Unknown]
